FAERS Safety Report 8002053-0 (Version None)
Quarter: 2011Q4

REPORT INFORMATION
  Report Type: 
  Country: None (occurrence: None)
  Receive Date: 20111222
  Receipt Date: 20111213
  Transmission Date: 20120403
  Serious: Yes (Hospitalization, Other)
  Sender: FDA-Public Use
  Company Number: US-BAYER-2011-049110

PATIENT
  Age: 46 Year
  Sex: Female
  Weight: 108.84 kg

DRUGS (3)
  1. YAZ [Suspect]
     Indication: UTERINE LEIOMYOMA
  2. ACETAMINOPHEN [Concomitant]
  3. YAZ [Suspect]
     Indication: MENORRHAGIA
     Dosage: UNK
     Route: 048
     Dates: start: 20080901, end: 20090501

REACTIONS (6)
  - PULMONARY EMBOLISM [None]
  - FEAR [None]
  - DEEP VEIN THROMBOSIS [None]
  - INJURY [None]
  - PAIN [None]
  - EMOTIONAL DISTRESS [None]
